FAERS Safety Report 6874296-0 (Version None)
Quarter: 2010Q3

REPORT INFORMATION
  Report Type: 
  Country: None (occurrence: None)
  Receive Date: 20100723
  Receipt Date: 20090430
  Transmission Date: 20110219
  Serious: Yes (Other)
  Sender: FDA-Public Use
  Company Number: US-PFIZER INC-2009210076

PATIENT
  Sex: Female
  Weight: 86.168 kg

DRUGS (5)
  1. CHANTIX [Suspect]
     Indication: SMOKING CESSATION THERAPY
     Dosage: UNK
     Dates: start: 20090416, end: 20090429
  2. LEVONORGESTREL AND ETHINYL ESTRADIOL [Concomitant]
     Dosage: UNK
  3. TYLENOL [Concomitant]
     Dosage: UNK
  4. TOPROL-XL [Concomitant]
     Dosage: UNK
  5. MACROBID [Concomitant]
     Dosage: UNK

REACTIONS (2)
  - EMOTIONAL DISTRESS [None]
  - SELF-INJURIOUS IDEATION [None]
